FAERS Safety Report 9162128 (Version 1)
Quarter: 2013Q1

REPORT INFORMATION
  Report Type: Spontaneous
  Country: FR (occurrence: FR)
  Receive Date: 20130314
  Receipt Date: 20130314
  Transmission Date: 20140127
  Serious: Yes (Hospitalization)
  Sender: FDA-Public Use
  Company Number: FR-MYLANLABS-2013S1004631

PATIENT
  Age: 56 Year
  Sex: Male

DRUGS (4)
  1. AMIODARONE [Suspect]
     Indication: ARRHYTHMIA SUPRAVENTRICULAR
     Route: 048
     Dates: start: 200801, end: 20121031
  2. KARDEGIC [Concomitant]
     Indication: ARRHYTHMIA SUPRAVENTRICULAR
     Dates: start: 200801
  3. CORDARONE [Concomitant]
     Indication: ARRHYTHMIA SUPRAVENTRICULAR
     Dates: start: 200801
  4. SKENAN [Concomitant]
     Indication: SCIATICA
     Dates: start: 201206

REACTIONS (2)
  - Interstitial lung disease [Recovering/Resolving]
  - Eosinophilia [Recovering/Resolving]
